FAERS Safety Report 4648408-3 (Version None)
Quarter: 2005Q2

REPORT INFORMATION
  Report Type: 
  Country: None (occurrence: None)
  Receive Date: 20050427
  Receipt Date: 20050414
  Transmission Date: 20051028
  Serious: Yes (Hospitalization, Other)
  Sender: FDA-Public Use
  Company Number: HQWYE131204FEB05

PATIENT
  Age: 69 Year
  Sex: Female

DRUGS (4)
  1. ETODOLAC [Suspect]
     Indication: ARTHRALGIA
     Dosage: ORAL
     Route: 048
     Dates: start: 20050119, end: 20050120
  2. ETODOLAC [Suspect]
     Indication: INJURY
     Dosage: ORAL
     Route: 048
     Dates: start: 20050119, end: 20050120
  3. OZEX (TOSUFLOXACIN TOSILATE, ) [Suspect]
     Dosage: ORAL
     Route: 048
     Dates: start: 20050119, end: 20050120
  4. MUCOSTA (REBAMIPIDE) [Concomitant]

REACTIONS (8)
  - EXCORIATION [None]
  - HAEMARTHROSIS [None]
  - IMPETIGO [None]
  - NEUTROPHIL COUNT INCREASED [None]
  - PYREXIA [None]
  - SKIN EXFOLIATION [None]
  - TOXIC SKIN ERUPTION [None]
  - WHITE BLOOD CELL COUNT INCREASED [None]
